FAERS Safety Report 5307274-3 (Version None)
Quarter: 2007Q2

REPORT INFORMATION
  Report Type: 
  Country: None (occurrence: None)
  Receive Date: 20070423
  Receipt Date: 20070423
  Transmission Date: 20071010
  Serious: Yes (Hospitalization)
  Sender: FDA-Public Use
  Company Number: None

PATIENT
  Age: 18 Year
  Sex: Male
  Weight: 125 kg

DRUGS (7)
  1. PROPOFOL [Suspect]
     Indication: ACUTE RESPIRATORY DISTRESS SYNDROME
     Dosage: 34,000 MG IN 4-5 DAYS ~ 3-5 MG/KG/HR
     Dates: start: 20070211, end: 20070215
  2. PROPOFOL [Suspect]
     Indication: TREATMENT FAILURE
     Dosage: 34,000 MG IN 4-5 DAYS ~ 3-5 MG/KG/HR
     Dates: start: 20070211, end: 20070215
  3. MIDAZOLAM DRIP [Concomitant]
  4. FENTANYL DRIP [Concomitant]
  5. SOLU-CORTEF [Concomitant]
  6. REGLAN [Concomitant]
  7. NEXIUM [Concomitant]

REACTIONS (7)
  - BLOOD CREATINE PHOSPHOKINASE INCREASED [None]
  - BLOOD CREATININE INCREASED [None]
  - HAEMODIALYSIS [None]
  - MULTIPLE DRUG OVERDOSE [None]
  - OXYGEN SATURATION DECREASED [None]
  - RENAL FAILURE ACUTE [None]
  - RHABDOMYOLYSIS [None]
